FAERS Safety Report 5006137-0 (Version None)
Quarter: 2006Q1

REPORT INFORMATION
  Report Type: 
  Country: None (occurrence: None)
  Receive Date: 20060328
  Receipt Date: 20060113
  Transmission Date: 20060701
  Serious: Yes (Hospitalization)
  Sender: FDA-Public Use
  Company Number: 06P-163-0321912-00

PATIENT
  Age: 70 Year
  Sex: Female
  Weight: 55.3388 kg

DRUGS (12)
  1. HUMIRA [Suspect]
     Indication: RHEUMATOID ARTHRITIS
     Dosage: 40 MG, 1 IN 2 WK, SUBCUTANEOUS
     Route: 058
     Dates: start: 20030101
  2. AMIODARONE [Concomitant]
  3. METOPROLOL TARTRATE [Concomitant]
  4. ACETYLSALICYLIC ACID SRT [Concomitant]
  5. CLOPIDOGREL BISULFATE [Concomitant]
  6. ISOSORBIDE MONONITRATE [Concomitant]
  7. HYDRALAZINE HCL [Concomitant]
  8. FUROSEMIDE [Concomitant]
  9. ATORVASTATIN CALCIUM [Concomitant]
  10. METHOTREXATE [Concomitant]
  11. DOXYCYCLINE [Concomitant]
  12. ALENDRONATE SODIUM [Concomitant]

REACTIONS (2)
  - CATARACT [None]
  - MYOCARDIAL INFARCTION [None]
